FAERS Safety Report 21360562 (Version 2)
Quarter: 2022Q4

REPORT INFORMATION
  Report Type: Report from Study
  Country: US (occurrence: US)
  Receive Date: 20220921
  Receipt Date: 20221013
  Transmission Date: 20230113
  Serious: Yes (Other)
  Sender: FDA-Public Use
  Company Number: US-BAYER-2022A126117

PATIENT
  Age: 57 Year
  Sex: Female
  Weight: 96.145 kg

DRUGS (1)
  1. ADEMPAS [Suspect]
     Active Substance: RIOCIGUAT
     Indication: Pulmonary arterial hypertension
     Dosage: 0.5 MG, TID
     Route: 048
     Dates: start: 20220818

REACTIONS (6)
  - Chest pain [Not Recovered/Not Resolved]
  - Immune system disorder [None]
  - Headache [Not Recovered/Not Resolved]
  - Constipation [None]
  - Stress [None]
  - Nasopharyngitis [None]

NARRATIVE: CASE EVENT DATE: 20220101
